FAERS Safety Report 7603961-2 (Version None)
Quarter: 2011Q3

REPORT INFORMATION
  Report Type: 
  Country: None (occurrence: None)
  Receive Date: 20110712
  Receipt Date: 20110704
  Transmission Date: 20111222
  Serious: Yes (Other)
  Sender: FDA-Public Use
  Company Number: DE-ABBOTT-11P-062-0729248-00

PATIENT
  Sex: Male

DRUGS (4)
  1. NORVIR [Suspect]
     Indication: PRODUCT USED FOR UNKNOWN INDICATION
     Dosage: 4-5 CAPSULES
     Route: 048
     Dates: start: 20110529
  2. ATRIPLA [Suspect]
     Indication: PRODUCT USED FOR UNKNOWN INDICATION
     Dosage: 4-5 TABLETS
     Route: 048
     Dates: start: 20110529
  3. TRUVADA [Suspect]
     Indication: PRODUCT USED FOR UNKNOWN INDICATION
     Dosage: 4-5 CAPSULES
     Route: 048
     Dates: start: 20110529
  4. PREZISTA [Suspect]
     Indication: PRODUCT USED FOR UNKNOWN INDICATION
     Dosage: 4-5 FILM TABLETS
     Dates: start: 20110529

REACTIONS (3)
  - ABSCESS [None]
  - NAUSEA [None]
  - VOMITING [None]
